FAERS Safety Report 19964829 (Version 2)
Quarter: 2021Q4

REPORT INFORMATION
  Report Type: Spontaneous
  Country: US (occurrence: US)
  Receive Date: 20211018
  Receipt Date: 20211103
  Transmission Date: 20220303
  Serious: Yes (Other)
  Sender: FDA-Public Use
  Company Number: US-PFIZER INC-202101358097

PATIENT
  Age: 31 Year
  Sex: Female

DRUGS (2)
  1. EPINEPHRINE\LIDOCAINE HYDROCHLORIDE [Suspect]
     Active Substance: EPINEPHRINE\LIDOCAINE HYDROCHLORIDE
     Dosage: 16 ML
     Route: 040
  2. METHERGINE [Concomitant]
     Active Substance: METHYLERGONOVINE MALEATE
     Indication: Uterine atony
     Dosage: 0.2 MG
     Route: 030

REACTIONS (2)
  - Loss of consciousness [Recovered/Resolved]
  - Horner^s syndrome [Recovered/Resolved]
